FAERS Safety Report 19528976 (Version 2)
Quarter: 2021Q3

REPORT INFORMATION
  Report Type: Report from Study
  Country: None (occurrence: US)
  Receive Date: 20210713
  Receipt Date: 20210728
  Transmission Date: 20211014
  Serious: Yes (Hospitalization, Other)
  Sender: FDA-Public Use
  Company Number: US-ABBVIE-21K-163-3981999-00

PATIENT
  Age: 77 Year
  Sex: Female
  Weight: 128.03 kg

DRUGS (1)
  1. HUMIRA [Suspect]
     Active Substance: ADALIMUMAB
     Indication: RHEUMATOID ARTHRITIS
     Dosage: CITRATE FREE
     Route: 058
     Dates: start: 20210428, end: 20210705

REACTIONS (8)
  - Malaise [Unknown]
  - Ankle fracture [Recovering/Resolving]
  - Tibia fracture [Not Recovered/Not Resolved]
  - Osteoporosis [Unknown]
  - Unevaluable event [Not Recovered/Not Resolved]
  - Fall [Recovered/Resolved]
  - Arthralgia [Unknown]
  - Device breakage [Unknown]

NARRATIVE: CASE EVENT DATE: 20210627
